FAERS Safety Report 5741607-9 (Version None)
Quarter: 2008Q2

REPORT INFORMATION
  Report Type: 
  Country: None (occurrence: None)
  Receive Date: 20080519
  Receipt Date: 20070306
  Transmission Date: 20081010
  Serious: No
  Sender: FDA-Public Use
  Company Number: US-BAYER-US-2007-008253

PATIENT
  Age: 43 Year
  Sex: Female
  Weight: 66 kg

DRUGS (2)
  1. ULTRAVIST 300 [Suspect]
     Indication: COMPUTERISED TOMOGRAM HEAD
     Dosage: UNIT DOSE: 32 ML
     Route: 042
     Dates: start: 20070307, end: 20070307
  2. READI-CAT [Suspect]
     Route: 048
     Dates: start: 20070307, end: 20070307

REACTIONS (3)
  - FEELING COLD [None]
  - NAUSEA [None]
  - VOMITING [None]
